FAERS Safety Report 5708522-8 (Version None)
Quarter: 2008Q2

REPORT INFORMATION
  Report Type: 
  Country: None (occurrence: None)
  Receive Date: 20080417
  Receipt Date: 20080405
  Transmission Date: 20081010
  Serious: Yes (Other)
  Sender: FDA-Public Use
  Company Number: US-PFIZER INC-2008030438

PATIENT
  Sex: Male
  Weight: 81.818 kg

DRUGS (5)
  1. LYRICA [Suspect]
     Indication: ARTHRITIS
     Dates: start: 20080320, end: 20080403
  2. LYRICA [Suspect]
     Indication: FIBROMYALGIA
  3. ANTIHYPERTENSIVES [Concomitant]
  4. VITAMINS [Concomitant]
  5. ALL OTHER THERAPEUTIC PRODUCTS [Concomitant]

REACTIONS (5)
  - ABASIA [None]
  - INCOHERENT [None]
  - MENTAL IMPAIRMENT [None]
  - MUSCLE TWITCHING [None]
  - SPEECH DISORDER [None]
